FAERS Safety Report 6706242-4 (Version None)
Quarter: 2010Q2

REPORT INFORMATION
  Report Type: 
  Country: None (occurrence: None)
  Receive Date: 20100503
  Receipt Date: 20100422
  Transmission Date: 20101027
  Serious: Yes (Hospitalization)
  Sender: FDA-Public Use
  Company Number: US-SANOFI-AVENTIS-2010SA024076

PATIENT
  Age: 61 Year
  Sex: Female

DRUGS (4)
  1. LANTUS [Suspect]
     Indication: DIABETES MELLITUS
     Dosage: DOSE:40 UNIT(S)
     Route: 058
     Dates: start: 20030101
  2. APIDRA [Suspect]
     Indication: DIABETES MELLITUS
     Dosage: TAKES APIDRA ON SLIDING SCALE TID WITH MEALS.
     Route: 058
     Dates: start: 20030101
  3. OPTICLICK [Suspect]
     Indication: DIABETES MELLITUS
     Dates: start: 20030101
  4. OPTICLICK [Suspect]
     Dates: start: 20030101

REACTIONS (4)
  - EXPIRED DRUG ADMINISTERED [None]
  - HEAD INJURY [None]
  - LOSS OF CONSCIOUSNESS [None]
  - PNEUMONIA [None]
